FAERS Safety Report 5206419-3 (Version None)
Quarter: 2006Q4

REPORT INFORMATION
  Report Type: 
  Country: None (occurrence: None)
  Receive Date: 20061026
  Receipt Date: 20060828
  Transmission Date: 20070319
  Serious: Yes (Other)
  Sender: FDA-Public Use
  Company Number: 2006106184

PATIENT
  Sex: Male

DRUGS (3)
  1. LYRICA [Suspect]
     Indication: POST HERPETIC NEURALGIA
     Dosage: 300 MG (100 MG, 3 IN 1 D)
     Dates: start: 20060101
  2. NEURONTIN [Suspect]
     Indication: POST HERPETIC NEURALGIA
  3. METFORMIN HCL [Concomitant]

REACTIONS (2)
  - NAUSEA [None]
  - WEIGHT INCREASED [None]
